FAERS Safety Report 19935628 (Version 1)
Quarter: 2021Q4

REPORT INFORMATION
  Report Type: Spontaneous
  Country: GB (occurrence: GB)
  Receive Date: 20211009
  Receipt Date: 20211009
  Transmission Date: 20220303
  Serious: Yes (Other)
  Sender: FDA-Public Use
  Company Number: None

PATIENT
  Age: 73 Year
  Sex: Male
  Weight: 100 kg

DRUGS (3)
  1. DRONEDARONE [Interacting]
     Active Substance: DRONEDARONE
     Dosage: 400 MG, BID
     Route: 048
     Dates: start: 202103
  2. ENTRESTO [Interacting]
     Active Substance: SACUBITRIL\VALSARTAN
     Dosage: 97 MG/103 MG
     Route: 065
  3. ENTRESTO [Interacting]
     Active Substance: SACUBITRIL\VALSARTAN
     Dosage: 49 MG/51 MG
     Route: 065

REACTIONS (2)
  - Renal impairment [Not Recovered/Not Resolved]
  - Drug interaction [Unknown]

NARRATIVE: CASE EVENT DATE: 20210501
